FAERS Safety Report 11121840 (Version 2)
Quarter: 2015Q2

REPORT INFORMATION
  Report Type: Spontaneous
  Country: FR (occurrence: FR)
  Receive Date: 20150519
  Receipt Date: 20150617
  Transmission Date: 20150821
  Serious: Yes (Hospitalization)
  Sender: FDA-Public Use
  Company Number: FR-HOSPIRA-2861535

PATIENT
  Age: 44 Year
  Sex: Male

DRUGS (8)
  1. FLUOROURACIL ACCORD [Suspect]
     Active Substance: FLUOROURACIL
     Indication: ADENOCARCINOMA PANCREAS
     Dosage: 48H DIFFUSER
     Route: 042
     Dates: start: 20150319, end: 20150321
  2. OXALIPLATIN HOSPIRA [Suspect]
     Active Substance: OXALIPLATIN
     Indication: ADENOCARCINOMA PANCREAS
     Route: 042
     Dates: start: 20150319, end: 20150319
  3. CLINDAMYCINE                       /00166002/ [Suspect]
     Active Substance: CLINDAMYCIN HYDROCHLORIDE
     Indication: STREPTOCOCCAL BACTERAEMIA
     Dosage: 3 DAYS
     Route: 042
     Dates: start: 20150403, end: 20150409
  4. PIPERACILLIN AND TAZOBACTAM [Suspect]
     Active Substance: PIPERACILLIN SODIUM\TAZOBACTAM SODIUM
     Indication: STREPTOCOCCAL BACTERAEMIA
     Dosage: 3 DAYS
     Route: 042
     Dates: start: 20150326, end: 20150415
  5. FOLINIC ACID [Concomitant]
     Active Substance: LEUCOVORIN
     Indication: ADENOCARCINOMA PANCREAS
     Dates: start: 20150319
  6. IRINOTECAN HOSPIRA [Suspect]
     Active Substance: IRINOTECAN
     Indication: ADENOCARCINOMA PANCREAS
     Route: 042
     Dates: start: 20150319, end: 20150319
  7. FLUOROURACIL ACCORD [Suspect]
     Active Substance: FLUOROURACIL
     Indication: ADENOCARCINOMA PANCREAS
     Route: 040
     Dates: start: 20150319, end: 20150321
  8. DALACINE                           /00166003/ [Suspect]
     Active Substance: CLINDAMYCIN\CLINDAMYCIN PHOSPHATE
     Indication: STREPTOCOCCAL BACTERAEMIA
     Dosage: 4 DOSES, DAYS
     Route: 048
     Dates: start: 20150410, end: 20150415

REACTIONS (7)
  - Agranulocytosis [Recovered/Resolved]
  - Dysphagia [Unknown]
  - Anaemia [Recovered/Resolved]
  - Bacteraemia [Unknown]
  - Thrombocytopenia [Recovered/Resolved]
  - Fungal infection [Unknown]
  - Asthenia [Unknown]

NARRATIVE: CASE EVENT DATE: 20150321
